FAERS Safety Report 6481263-8 (Version None)
Quarter: 2009Q4

REPORT INFORMATION
  Report Type: 
  Country: None (occurrence: None)
  Receive Date: 20091208
  Receipt Date: 20091204
  Transmission Date: 20100525
  Serious: Yes (Hospitalization)
  Sender: FDA-Public Use
  Company Number: A0833623A

PATIENT
  Age: 63 Year
  Sex: Female

DRUGS (11)
  1. ADVAIR DISKUS 100/50 [Suspect]
     Indication: CHRONIC OBSTRUCTIVE PULMONARY DISEASE
     Dosage: 1PUFF PER DAY
     Route: 055
     Dates: start: 20080101
  2. PROMETHAZINE [Concomitant]
  3. OXYGEN [Concomitant]
  4. PREDNISONE [Concomitant]
  5. LISINOPRIL [Concomitant]
  6. METFORMIN HCL [Concomitant]
  7. VICODIN [Concomitant]
  8. SIMVASTATIN [Concomitant]
  9. ACTOS [Concomitant]
  10. ALPRAZOLAM [Concomitant]
  11. FLUTICASONE PROPIONATE [Concomitant]
     Route: 045

REACTIONS (3)
  - DYSPHAGIA [None]
  - PNEUMONIA [None]
  - SWOLLEN TONGUE [None]
